FAERS Safety Report 11086768 (Version 1)
Quarter: 2015Q2

REPORT INFORMATION
  Report Type: Spontaneous
  Country: US (occurrence: None)
  Receive Date: 20150501
  Receipt Date: 20150501
  Transmission Date: 20150821
  Serious: Yes (Other)
  Sender: FDA-Public Use
  Company Number: None

PATIENT
  Age: 53 Year
  Sex: Male

DRUGS (1)
  1. ESOMEPRAZOLE MAG [Suspect]
     Active Substance: ESOMEPRAZOLE MAGNESIUM
     Indication: BARRETT^S OESOPHAGUS
     Route: 048
     Dates: start: 20150417, end: 20150430

REACTIONS (5)
  - Product substitution issue [None]
  - Disease recurrence [None]
  - Product quality issue [None]
  - Drug effect decreased [None]
  - Dyspepsia [None]

NARRATIVE: CASE EVENT DATE: 20150430
